FAERS Safety Report 5281702-4 (Version None)
Quarter: 2007Q1

REPORT INFORMATION
  Report Type: 
  Country: None (occurrence: None)
  Receive Date: 20070330
  Receipt Date: 20070324
  Transmission Date: 20070707
  Serious: Yes (Death)
  Sender: FDA-Public Use
  Company Number: BR-AVENTIS-200711545EU

PATIENT
  Age: 96 Year
  Sex: Male

DRUGS (3)
  1. LASIX [Suspect]
     Dosage: DOSE: 1 TABLET
     Route: 048
     Dates: start: 20060101, end: 20070101
  2. LASIX [Suspect]
     Dosage: DOSE: 1 TABLET
     Route: 048
     Dates: start: 20070322
  3. PROPRANOLOL [Suspect]

REACTIONS (1)
  - DEATH [None]
